FAERS Safety Report 7245918-X (Version None)
Quarter: 2011Q1

REPORT INFORMATION
  Report Type: 
  Country: None (occurrence: None)
  Receive Date: 20110126
  Receipt Date: 20110118
  Transmission Date: 20110831
  Serious: Yes (Hospitalization)
  Sender: FDA-Public Use
  Company Number: DE-ABBOTT-10P-062-0687634-00

PATIENT
  Sex: Female

DRUGS (4)
  1. HUMIRA [Suspect]
     Indication: CROHN'S DISEASE
     Route: 058
     Dates: start: 20100525
  2. CORTISONE [Concomitant]
     Indication: CROHN'S DISEASE
     Dosage: 35 MILLIGRAM
  3. HUMIRA [Suspect]
     Dates: start: 20101116
  4. AZATHIOPRIN [Concomitant]
     Indication: CROHN'S DISEASE

REACTIONS (3)
  - ABDOMINAL PAIN [None]
  - HOSPITALISATION [None]
  - CROHN'S DISEASE [None]
